FAERS Safety Report 9783874 (Version 1)
Quarter: 2013Q4

REPORT INFORMATION
  Report Type: Spontaneous
  Country: US (occurrence: US)
  Receive Date: 20131226
  Receipt Date: 20131226
  Transmission Date: 20140711
  Serious: Yes (Other)
  Sender: FDA-Public Use
  Company Number: US-PFIZER INC-2013365241

PATIENT
  Age: 36 Year
  Sex: Male
  Weight: 99.77 kg

DRUGS (1)
  1. VIAGRA [Suspect]
     Indication: PENIS DISORDER
     Dosage: 100 MG, DAILY
     Dates: start: 201311

REACTIONS (1)
  - Erection increased [Unknown]
